FAERS Safety Report 14841896 (Version 1)
Quarter: 2018Q2

REPORT INFORMATION
  Report Type: Spontaneous
  Country: FR (occurrence: FR)
  Receive Date: 20180503
  Receipt Date: 20180503
  Transmission Date: 20180711
  Serious: Yes (Other)
  Sender: FDA-Public Use
  Company Number: FR-MERCK KGAA-2047092

PATIENT
  Age: 43 Year
  Sex: Female

DRUGS (1)
  1. NOVOTHYROX [Suspect]
     Active Substance: LEVOTHYROXINE SODIUM
     Indication: PRODUCT USED FOR UNKNOWN INDICATION

REACTIONS (15)
  - Anger [None]
  - Loss of personal independence in daily activities [None]
  - Social avoidant behaviour [None]
  - Tremor [None]
  - Visual impairment [Recovered/Resolved]
  - Pain [None]
  - Beta globulin abnormal [None]
  - Immunoglobulins decreased [None]
  - Vertigo [Recovered/Resolved]
  - Blood thyroid stimulating hormone increased [None]
  - Intracranial pressure increased [Recovered/Resolved]
  - Fall [None]
  - Protein total decreased [None]
  - Blood alkaline phosphatase decreased [None]
  - Fear [None]

NARRATIVE: CASE EVENT DATE: 201706
